FAERS Safety Report 9493491 (Version 1)
Quarter: 2013Q3

REPORT INFORMATION
  Report Type: Spontaneous
  Country: CH (occurrence: CH)
  Receive Date: 20130902
  Receipt Date: 20130902
  Transmission Date: 20140515
  Serious: Yes (Other)
  Sender: FDA-Public Use
  Company Number: CH-JNJFOC-20130817295

PATIENT
  Sex: Male

DRUGS (2)
  1. PALEXIA [Suspect]
     Indication: PAIN
     Route: 048
  2. DAFALGAN [Concomitant]
     Indication: PRODUCT USED FOR UNKNOWN INDICATION
     Route: 065
     Dates: start: 201211

REACTIONS (3)
  - Self-injurious ideation [Recovered/Resolved]
  - Pruritus [Recovered/Resolved]
  - Nightmare [Recovered/Resolved]
